FAERS Safety Report 25993528 (Version 3)
Quarter: 2025Q4

REPORT INFORMATION
  Report Type: Report from Study
  Country: CA (occurrence: CA)
  Receive Date: 20251104
  Receipt Date: 20251230
  Transmission Date: 20260117
  Serious: Yes (Other)
  Sender: CELLTRION
  Company Number: CA-CELLTRION INC.-2025CA022930

PATIENT

DRUGS (8)
  1. INFLIXIMAB-DYYB [Suspect]
     Active Substance: INFLIXIMAB-DYYB
     Indication: Crohn^s disease
     Dosage: 900 MG EVERY 4 WEEKS
     Route: 042
     Dates: start: 20250708
  2. INFLIXIMAB-DYYB [Suspect]
     Active Substance: INFLIXIMAB-DYYB
     Dosage: REMDANTRY - MAINTENANCE - 800 MG - EVERY 4 WEEKS
     Route: 042
     Dates: start: 20250708
  3. INFLIXIMAB-DYYB [Suspect]
     Active Substance: INFLIXIMAB-DYYB
     Dosage: REMDANTRY - MAINTENANCE - 800 MG - EVERY 4 WEEKS
     Route: 042
     Dates: start: 20250903
  4. INFLIXIMAB-DYYB [Suspect]
     Active Substance: INFLIXIMAB-DYYB
     Dosage: REMDANTRY - MAINTENANCE - 800 MG - EVERY 4 WEEKS
     Route: 042
     Dates: start: 20250929
  5. INFLIXIMAB-DYYB [Suspect]
     Active Substance: INFLIXIMAB-DYYB
     Dosage: REMDANTRY - MAINTENANCE - 800 MG - EVERY 4 WEEKS
     Route: 042
     Dates: start: 20251029
  6. WEGOVY [Concomitant]
     Active Substance: SEMAGLUTIDE
  7. BENADRYL [Concomitant]
     Active Substance: DIPHENHYDRAMINE HYDROCHLORIDE
     Route: 042
  8. SOLU-CORTEF [Concomitant]
     Active Substance: HYDROCORTISONE SODIUM SUCCINATE
     Route: 042

REACTIONS (6)
  - Crohn^s disease [Unknown]
  - Intervertebral disc disorder [Recovered/Resolved]
  - Harvey-Bradshaw index increased [Unknown]
  - Off label use [Unknown]
  - Therapy interrupted [Unknown]
  - Inappropriate schedule of product administration [Unknown]

NARRATIVE: CASE EVENT DATE: 20250708
